FAERS Safety Report 21635378 (Version 2)
Quarter: 2022Q4

REPORT INFORMATION
  Report Type: Spontaneous
  Country: US (occurrence: US)
  Receive Date: 20221123
  Receipt Date: 20221207
  Transmission Date: 20230112
  Serious: No
  Sender: FDA-Public Use
  Company Number: US-NOVOPROD-890730

PATIENT
  Sex: Male

DRUGS (2)
  1. NOVOLIN N [Suspect]
     Active Substance: INSULIN HUMAN
     Indication: Diabetes mellitus
     Dosage: 17-21 IU BID
     Route: 058
  2. NOVOLOG [Suspect]
     Active Substance: INSULIN ASPART
     Indication: Diabetes mellitus
     Dosage: SLIDING SCALE BID
     Route: 058

REACTIONS (1)
  - COVID-19 [Recovering/Resolving]

NARRATIVE: CASE EVENT DATE: 20211101
